FAERS Safety Report 23028338 (Version 1)
Quarter: 2023Q4

REPORT INFORMATION
  Report Type: Spontaneous
  Country: US (occurrence: None)
  Receive Date: 20231004
  Receipt Date: 20231004
  Transmission Date: 20240110
  Serious: Yes (Hospitalization)
  Sender: FDA-Public Use
  Company Number: None

PATIENT
  Age: 70 Year
  Sex: Female
  Weight: 63.99 kg

DRUGS (22)
  1. NIVOLUMAB [Suspect]
     Active Substance: NIVOLUMAB
     Indication: Non-small cell lung cancer
     Dosage: FREQUENCY : ONCE;?
     Route: 042
  2. CARBOPLATIN [Concomitant]
     Active Substance: CARBOPLATIN
  3. PACLITAXEL [Concomitant]
     Active Substance: PACLITAXEL
  4. APREPITANT [Concomitant]
     Active Substance: APREPITANT
  5. DEXAMETHASONE [Concomitant]
     Active Substance: DEXAMETHASONE
  6. DIFLUCAN [Concomitant]
     Active Substance: FLUCONAZOLE
  7. DIPHENHYDRAMINE [Concomitant]
     Active Substance: DIPHENHYDRAMINE
  8. FAMOTIDINE [Concomitant]
     Active Substance: FAMOTIDINE
  9. HEPARIN [Concomitant]
     Active Substance: HEPARIN SODIUM
  10. OMEPRAZOLE [Concomitant]
     Active Substance: OMEPRAZOLE
  11. ONDANSETRON [Concomitant]
     Active Substance: ONDANSETRON
  12. PALONOSETRON [Concomitant]
     Active Substance: PALONOSETRON
  13. PREDNISONE [Concomitant]
     Active Substance: PREDNISONE
  14. VISTARIL [Concomitant]
     Active Substance: HYDROXYZINE PAMOATE
  15. ATENOLOL [Concomitant]
     Active Substance: ATENOLOL
  16. CLONAZEPAM [Concomitant]
     Active Substance: CLONAZEPAM
  17. DOXEPIN [Concomitant]
     Active Substance: DOXEPIN
  18. ERGOCALCIFEROL [Concomitant]
     Active Substance: ERGOCALCIFEROL
  19. MONTELUKAST [Concomitant]
     Active Substance: MONTELUKAST SODIUM
  20. LEVALBUTEROL [Concomitant]
     Active Substance: LEVALBUTEROL
  21. OXYCODONE [Concomitant]
     Active Substance: OXYCODONE
  22. TRAZODONE [Concomitant]
     Active Substance: TRAZODONE HYDROCHLORIDE

REACTIONS (8)
  - Rash maculo-papular [None]
  - Rash pruritic [None]
  - Face oedema [None]
  - Rash [None]
  - Rash [None]
  - Drug ineffective [None]
  - Immune-mediated dermatitis [None]
  - Therapy cessation [None]

NARRATIVE: CASE EVENT DATE: 20230921
